FAERS Safety Report 24620585 (Version 1)
Quarter: 2024Q4

REPORT INFORMATION
  Report Type: Spontaneous
  Country: GB (occurrence: GB)
  Receive Date: 20241114
  Receipt Date: 20241114
  Transmission Date: 20250114
  Serious: Yes (Other)
  Sender: GLAXOSMITHKLINE
  Company Number: None

PATIENT

DRUGS (2)
  1. MOMELOTINIB [Suspect]
     Active Substance: MOMELOTINIB
     Indication: Product used for unknown indication
     Dosage: UNK
     Route: 065
     Dates: start: 20240918, end: 20241003
  2. MOMELOTINIB [Suspect]
     Active Substance: MOMELOTINIB
     Dosage: 200 MG OD
     Route: 065
     Dates: end: 20241106

REACTIONS (3)
  - Renal impairment [Not Recovered/Not Resolved]
  - Chronic kidney disease [Unknown]
  - Acute kidney injury [Unknown]

NARRATIVE: CASE EVENT DATE: 20241001
